FAERS Safety Report 7743262-5 (Version None)
Quarter: 2011Q3

REPORT INFORMATION
  Report Type: 
  Country: None (occurrence: None)
  Receive Date: 20110909
  Receipt Date: 20110909
  Transmission Date: 20111222
  Serious: No
  Sender: FDA-Public Use
  Company Number: None

PATIENT

DRUGS (1)
  1. FOSAMAX [Suspect]

REACTIONS (2)
  - AMNESIA [None]
  - DEMENTIA ALZHEIMER'S TYPE [None]
